FAERS Safety Report 14007983 (Version 1)
Quarter: 2017Q3

REPORT INFORMATION
  Report Type: Spontaneous
  Country: US (occurrence: None)
  Receive Date: 20170925
  Receipt Date: 20170925
  Transmission Date: 20171128
  Serious: Yes (Disabling, Other)
  Sender: FDA-Public Use
  Company Number: None

PATIENT
  Age: 45 Year
  Sex: Male
  Weight: 92.99 kg

DRUGS (1)
  1. ABILIFY [Suspect]
     Active Substance: ARIPIPRAZOLE
     Indication: BIPOLAR I DISORDER
     Route: 048
     Dates: start: 20040224, end: 20040330

REACTIONS (6)
  - Legal problem [None]
  - Loss of employment [None]
  - Similar reaction on previous exposure to drug [None]
  - Hypersexuality [None]
  - Weight increased [None]
  - Libido increased [None]

NARRATIVE: CASE EVENT DATE: 20040224
